FAERS Safety Report 7384584-X (Version None)
Quarter: 2011Q1

REPORT INFORMATION
  Report Type: 
  Country: None (occurrence: None)
  Receive Date: 20110330
  Receipt Date: 20110322
  Transmission Date: 20110831
  Serious: Yes (Life-Threatening)
  Sender: FDA-Public Use
  Company Number: US-ELI_LILLY_AND_COMPANY-US201101005487

PATIENT
  Sex: Male

DRUGS (31)
  1. LISINOPRIL [Concomitant]
     Dosage: 40 MG, EACH MORNING
     Dates: start: 20101027
  2. PARACETAMOL [Concomitant]
     Indication: DISCOMFORT
     Dosage: 650 MG, PRN
     Dates: start: 20100908
  3. OTHER PHARMA COMPANY INV DRUG [Suspect]
     Dosage: 250 MG, OTHER (SIX DAYS OF EACH 21 DAY CYCLE)
     Route: 048
     Dates: start: 20100714
  4. LORAZEPAM [Concomitant]
     Indication: INSOMNIA
     Dosage: 1 MG, AS NEEDED
     Dates: start: 20080628
  5. DOCUSATE SODIUM [Concomitant]
     Indication: CONSTIPATION PROPHYLAXIS
     Dosage: 100 MG, AS NEEDED
     Dates: start: 20080204
  6. VITAMIN B-12 [Concomitant]
     Indication: SUPPLEMENTATION THERAPY
     Dosage: 100 UG, EACH MORNING
     Dates: start: 20101117
  7. LACTULOSE [Concomitant]
     Indication: CONSTIPATION PROPHYLAXIS
     Dosage: 10/15G.ML, AS NEEDED
     Dates: start: 20091215
  8. METOPROLOL TARTRATE [Concomitant]
     Dosage: 25 MG, DAILY (1/D)
     Dates: start: 20040101
  9. PROCHLORPERAZINE [Concomitant]
     Indication: NAUSEA
     Dosage: 10 MG, AS NEEDED
     Dates: start: 20080128
  10. MAGNESIUM CITRATE [Concomitant]
     Indication: CONSTIPATION PROPHYLAXIS
     Dosage: UNK, AS NEEDED
     Dates: start: 20091011
  11. CALCIUM CARBONATE [Concomitant]
     Indication: MINERAL SUPPLEMENTATION
     Dosage: 1000 MG, EACH MORNING
     Dates: start: 20100602
  12. OMEPRAZOLE [Concomitant]
     Indication: GASTROOESOPHAGEAL REFLUX DISEASE
     Dosage: 20 MG, EACH MORNING
     Dates: start: 20100906
  13. SODIUM CHLORIDE [Concomitant]
     Indication: PROPHYLAXIS AGAINST DEHYDRATION
     Dosage: 1000 ML, PRN
     Dates: start: 20100903
  14. LOPERAMIDE [Concomitant]
     Indication: DIARRHOEA
  15. OXYCODONE [Concomitant]
     Indication: MUSCULOSKELETAL PAIN
     Dosage: 10 MG, EACH MORNING
     Dates: start: 20100922
  16. LISINOPRIL [Concomitant]
     Indication: HYPERTENSION
     Dosage: 10 MG, EACH MORNING
     Dates: start: 20101013, end: 20101020
  17. MORPHINE [Concomitant]
     Indication: MUSCULOSKELETAL PAIN
     Dosage: 15 MG, AS NEEDED
     Dates: start: 20080101
  18. ONDANSETRON HYDROCHLORIDE [Concomitant]
     Indication: NAUSEA
     Dosage: 8 MG, AS NEEDED
     Dates: start: 20080101
  19. AMLODIPINE [Concomitant]
     Indication: HYPERTENSION
     Dosage: 10 MG, EACH MORNING
     Dates: start: 20101110
  20. GEMCITABINE HYDROCHLORIDE [Suspect]
     Indication: NEOPLASM
     Dosage: 750 MG/M2, OTHER (TWO DAYS OF EACH 21 DAY CYCLE)
     Route: 042
     Dates: start: 20100510, end: 20100602
  21. GEMCITABINE HYDROCHLORIDE [Suspect]
     Dosage: 600 MG/M2, OTHER  (TWO DAYS OF EACH 21 DAY CYCLE)
     Route: 042
     Dates: start: 20100616, end: 20101006
  22. LIDOCAINE [Concomitant]
     Indication: PAIN
     Dosage: 700 MG, OTHER ( 12 HRS ON AND12HOURS OFF)
     Dates: start: 20100427
  23. DARBEPOETIN ALFA [Concomitant]
     Indication: ANAEMIA
     Dosage: 200 UG, 2/W
     Dates: start: 20100602
  24. GEMCITABINE HYDROCHLORIDE [Suspect]
     Dosage: 1056 MG/M2, OTHER  (TWO DAYS OF EACH 21 DAY CYCLE)
     Route: 042
     Dates: start: 20101020
  25. OTHER PHARMA COMPANY INV DRUG [Suspect]
     Indication: NEOPLASM
     Dosage: 325 MG, OTHER (SIX DAYS OF EACH 21 DAY CYCLE)
     Route: 048
     Dates: start: 20100510, end: 20100630
  26. CITALOPRAM HYDROBROMIDE [Concomitant]
     Indication: DEPRESSION
     Dosage: 10 MG, DAILY (1/D)
     Dates: start: 20081023
  27. GABAPENTIN [Concomitant]
     Indication: PAIN
     Dosage: 300 MG, 3/D
     Dates: start: 20100420
  28. SENNA ALEXANDRINA [Concomitant]
     Indication: CONSTIPATION
     Dosage: 8.6 MG, AS NEEDED
     Dates: start: 20091011
  29. LISINOPRIL [Concomitant]
     Dosage: 20 MG, EACH MORNING
     Dates: start: 20101020, end: 20101027
  30. RANITIDINE [Concomitant]
     Indication: GASTROOESOPHAGEAL REFLUX DISEASE
     Dosage: 150 MG, 2/D
     Dates: start: 20090817
  31. PYRIDOXINE [Concomitant]
     Indication: GENERAL PHYSICAL CONDITION
     Dosage: 100 MG, DAILY (1/D)
     Dates: start: 20080825

REACTIONS (1)
  - THROMBOTIC THROMBOCYTOPENIC PURPURA [None]
